FAERS Safety Report 22856113 (Version 2)
Quarter: 2024Q1

REPORT INFORMATION
  Report Type: Spontaneous
  Country: US (occurrence: US)
  Receive Date: 20230823
  Receipt Date: 20240111
  Transmission Date: 20240410
  Serious: No
  Sender: FDA-Public Use
  Company Number: US-002147023-NVSC2023US181214

PATIENT
  Sex: Female
  Weight: 85 kg

DRUGS (16)
  1. MYFORTIC [Suspect]
     Active Substance: MYCOPHENOLATE SODIUM
     Indication: Renal transplant
     Dosage: 180 MG, BID (TITRATED UP TO 360 MG TWICE A DAY AFTER 1 WEEK)
     Route: 048
     Dates: start: 20230629, end: 20230815
  2. TACROLIMUS [Concomitant]
     Active Substance: TACROLIMUS
     Indication: Renal transplant
     Dosage: UNK, BID (4 MG IN AM AND 5 MG IN PM)
     Route: 065
     Dates: start: 202104
  3. TACROLIMUS [Concomitant]
     Active Substance: TACROLIMUS
     Dosage: 1 MG, QD
     Route: 065
     Dates: start: 20210423
  4. PREDNISONE [Concomitant]
     Active Substance: PREDNISONE
     Indication: Renal transplant
     Dosage: 5 MG, QD
     Route: 065
     Dates: start: 20210423
  5. WELLBUTRIN [Concomitant]
     Active Substance: BUPROPION HYDROCHLORIDE
     Indication: Anxiety
     Dosage: 150 MG, QD
     Route: 065
     Dates: start: 2021
  6. WELLBUTRIN [Concomitant]
     Active Substance: BUPROPION HYDROCHLORIDE
     Dosage: 150 MG, QD
     Route: 065
     Dates: start: 20230629, end: 20230725
  7. FLUOXETINE [Concomitant]
     Active Substance: FLUOXETINE HYDROCHLORIDE
     Indication: Anxiety
     Dosage: 20 MG, QD
     Route: 065
     Dates: start: 2022
  8. CALCITRIOL [Concomitant]
     Active Substance: CALCITRIOL
     Indication: Renal transplant
     Dosage: 0.5 UG, QD ON M, W, F
     Route: 065
     Dates: start: 2019
  9. AMLODIPINE [Concomitant]
     Active Substance: AMLODIPINE BESYLATE
     Indication: Hypertension
     Dosage: 10 MG, QD
     Route: 065
     Dates: start: 20230413
  10. IMURAN [Concomitant]
     Active Substance: AZATHIOPRINE
     Indication: Renal transplant
     Dosage: 50 MG, 2 DOSAGE FORM, QD
     Route: 065
     Dates: start: 20230815
  11. KEFLEX [Concomitant]
     Active Substance: CEPHALEXIN
     Indication: Urinary tract infection
     Dosage: 500 MG, QD
     Route: 065
     Dates: start: 20231003
  12. LEXAPRO [Concomitant]
     Active Substance: ESCITALOPRAM OXALATE
     Indication: Anxiety
     Dosage: 10 MG, QD
     Route: 065
     Dates: start: 20230606, end: 20230725
  13. LEXAPRO [Concomitant]
     Active Substance: ESCITALOPRAM OXALATE
     Indication: Depression
  14. ROCALTROL [Concomitant]
     Active Substance: CALCITRIOL
     Indication: Renal transplant
     Dosage: 0.5 UG (EVERY MONDAY, WEDNESDAY AND FRIDAY)
     Route: 065
     Dates: start: 20230425
  15. PROZAC [Concomitant]
     Active Substance: FLUOXETINE HYDROCHLORIDE
     Indication: Anxiety
     Dosage: 20 MG, QD
     Route: 065
     Dates: start: 20230725
  16. ATARAX [Concomitant]
     Active Substance: HYDROXYZINE HYDROCHLORIDE
     Indication: Anxiety
     Dosage: 25 MG, QD (PRN)
     Route: 065
     Dates: start: 20230725

REACTIONS (1)
  - Maternal exposure during pregnancy [Unknown]
